FAERS Safety Report 9796363 (Version 2)
Quarter: 2014Q2

REPORT INFORMATION
  Report Type: Spontaneous
  Country: US (occurrence: US)
  Receive Date: 20140103
  Receipt Date: 20140401
  Transmission Date: 20141212
  Serious: Yes (Congenital Anomaly, Other)
  Sender: FDA-Public Use
  Company Number: US-PFIZER INC-2014000844

PATIENT
  Sex: Male

DRUGS (14)
  1. ZOLOFT [Suspect]
     Indication: ANXIETY
     Dosage: UNK
     Route: 064
     Dates: start: 200607, end: 200708
  2. ZOLOFT [Suspect]
     Indication: DEPRESSION
  3. ZOLOFT [Suspect]
     Indication: AFFECTIVE DISORDER
  4. PRENATAL VITAMINS [Concomitant]
     Dosage: UNK
     Route: 064
  5. HYDROCODONE-ACETAMINOPHEN [Concomitant]
     Dosage: UNK
     Route: 064
  6. PROPOXYPHENE-ACETAMINOPHEN [Concomitant]
     Dosage: UNK
     Route: 064
  7. ACETAMINOPHEN CODEINE 3 [Concomitant]
     Dosage: UNK
     Route: 064
  8. CEPHALEXIN [Concomitant]
     Dosage: UNK
     Route: 064
  9. METOCLOPRAMIDE [Concomitant]
     Dosage: UNK
     Route: 064
  10. PROMETHAZINE [Concomitant]
     Dosage: UNK
     Route: 064
  11. BUPROPION [Concomitant]
     Dosage: UNK
     Route: 064
  12. LORAZEPAM [Concomitant]
     Dosage: UNK
     Route: 064
  13. TOBRAMYCIN [Concomitant]
     Dosage: UNK
     Route: 064
  14. CITALOPRAM [Concomitant]
     Dosage: UNK
     Route: 064

REACTIONS (3)
  - Foetal exposure during pregnancy [Unknown]
  - Craniosynostosis [Unknown]
  - Premature baby [Unknown]
